FAERS Safety Report 7052729-7 (Version None)
Quarter: 2010Q4

REPORT INFORMATION
  Report Type: 
  Country: None (occurrence: None)
  Receive Date: 20101019
  Receipt Date: 20101014
  Transmission Date: 20110411
  Serious: Yes (Other)
  Sender: FDA-Public Use
  Company Number: GB-MERCK-1010GBR00057

PATIENT
  Age: 19 Year
  Sex: Female
  Weight: 72 kg

DRUGS (5)
  1. SINGULAIR [Suspect]
     Indication: ASTHMA
     Route: 048
  2. OMALIZUMAB [Suspect]
     Indication: ASTHMA
     Route: 065
  3. FLUTICASONE [Concomitant]
     Indication: ASTHMA
     Route: 065
  4. BUDESONIDE [Concomitant]
     Indication: ASTHMA
     Route: 065
  5. BUDESONIDE AND FORMOTEROL FUMARATE [Concomitant]
     Indication: ASTHMA
     Route: 065

REACTIONS (3)
  - DRUG EXPOSURE DURING PREGNANCY [None]
  - PYELONEPHRITIS [None]
  - URINARY TRACT INFECTION [None]
